FAERS Safety Report 17558278 (Version 1)
Quarter: 2020Q1

REPORT INFORMATION
  Report Type: Spontaneous
  Country: DE (occurrence: DE)
  Receive Date: 20200318
  Receipt Date: 20200318
  Transmission Date: 20200409
  Serious: Yes (Hospitalization, Other)
  Sender: FDA-Public Use
  Company Number: DE-PFM-2020-03129

PATIENT

DRUGS (2)
  1. PROPRANOLOL [Suspect]
     Active Substance: PROPRANOLOL HYDROCHLORIDE
     Indication: PRODUCT USED FOR UNKNOWN INDICATION
     Dosage: NK MG, NK
     Route: 065
  2. CARBIMAZOL [Suspect]
     Active Substance: CARBIMAZOLE
     Indication: PRODUCT USED FOR UNKNOWN INDICATION
     Dosage: 20 MG, UNK
     Route: 065

REACTIONS (6)
  - Anxiety [Unknown]
  - Restlessness [Unknown]
  - Bradycardia [Unknown]
  - Off label use [Unknown]
  - Palpitations [Unknown]
  - Product use issue [Unknown]
